FAERS Safety Report 21439326 (Version 2)
Quarter: 2022Q4

REPORT INFORMATION
  Report Type: Spontaneous
  Country: SK (occurrence: SK)
  Receive Date: 20221011
  Receipt Date: 20221020
  Transmission Date: 20230113
  Serious: Yes (Other)
  Sender: FDA-Public Use
  Company Number: SK-TAKEDA-2022TUS071829

PATIENT
  Age: 14 Year
  Sex: Female

DRUGS (3)
  1. HUMAN IMMUNOGLOBULIN G [Suspect]
     Active Substance: HUMAN IMMUNOGLOBULIN G
     Indication: Toxic shock syndrome streptococcal
     Dosage: UNK
     Route: 042
  2. OXYGEN [Concomitant]
     Active Substance: OXYGEN
     Dosage: UNK
     Route: 045
  3. PENICILLIN [Concomitant]
     Active Substance: PENICILLIN
     Indication: Toxic shock syndrome streptococcal
     Dosage: UNK

REACTIONS (3)
  - Respiration abnormal [Recovered/Resolved]
  - Tremor [Recovered/Resolved]
  - Off label use [Unknown]
